FAERS Safety Report 6682012-0 (Version None)
Quarter: 2010Q2

REPORT INFORMATION
  Report Type: 
  Country: None (occurrence: None)
  Receive Date: 20100414
  Receipt Date: 20100414
  Transmission Date: 20101027
  Serious: No
  Sender: FDA-Public Use
  Company Number: None

PATIENT
  Age: 74 Year
  Sex: Female
  Weight: 84.8226 kg

DRUGS (1)
  1. AMLODIPINE [Suspect]
     Indication: HYPERTENSION
     Dosage: 2.5MG 1 PER DAY
     Dates: start: 20100205, end: 20100329

REACTIONS (18)
  - ABNORMAL DREAMS [None]
  - ASTHENIA [None]
  - CHOKING [None]
  - DIZZINESS [None]
  - DRY THROAT [None]
  - DYSPNOEA [None]
  - FALL [None]
  - FATIGUE [None]
  - FEELING ABNORMAL [None]
  - GINGIVAL BLEEDING [None]
  - HEADACHE [None]
  - HYPERSENSITIVITY [None]
  - PARAESTHESIA [None]
  - SENSATION OF BLOOD FLOW [None]
  - STOMATITIS [None]
  - TINNITUS [None]
  - TONGUE DRY [None]
  - TREMOR [None]
